FAERS Safety Report 6826798-0 (Version None)
Quarter: 2010Q3

REPORT INFORMATION
  Report Type: 
  Country: None (occurrence: None)
  Receive Date: 20100709
  Receipt Date: 20100629
  Transmission Date: 20110219
  Serious: Yes (Other)
  Sender: FDA-Public Use
  Company Number: AR-JNJFOC-20100700643

PATIENT
  Sex: Female
  Weight: 60 kg

DRUGS (21)
  1. GOLIMUMAB [Suspect]
     Route: 058
  2. GOLIMUMAB [Suspect]
     Indication: RHEUMATOID ARTHRITIS
     Route: 058
  3. METHOTREXATE [Suspect]
     Indication: RHEUMATOID ARTHRITIS
     Dosage: 6-8 CAPSULES
     Route: 048
  4. METHOTREXATE [Concomitant]
     Route: 048
  5. METHOTREXATE [Concomitant]
     Route: 048
  6. METHOTREXATE [Concomitant]
     Route: 048
  7. METHOTREXATE [Concomitant]
     Route: 048
  8. METHOTREXATE [Concomitant]
     Route: 048
  9. METHOTREXATE [Concomitant]
     Route: 048
  10. METHOTREXATE [Concomitant]
     Route: 048
  11. METHOTREXATE [Concomitant]
     Route: 048
  12. LEVOTHYROXINE SODIUM [Concomitant]
     Route: 048
  13. FOLIC ACID [Concomitant]
     Route: 048
  14. BILETAN FORTE [Concomitant]
     Route: 048
  15. ACETYLSALICYLIC ACID [Concomitant]
     Route: 048
  16. FERRANIN COMPLEX [Concomitant]
     Route: 048
  17. ALPRAZOLAM [Concomitant]
     Route: 048
  18. DICLOFENAC SODIUM [Concomitant]
     Route: 048
  19. DESLORATADINE [Concomitant]
     Route: 048
  20. AMITRIPTYLINE HYDROCHLORIDE [Concomitant]
     Route: 048
  21. TOLFENAMIC ACID [Concomitant]
     Route: 048

REACTIONS (1)
  - OPTIC NEURITIS [None]
